FAERS Safety Report 7715355-X (Version None)
Quarter: 2011Q3

REPORT INFORMATION
  Report Type: 
  Country: None (occurrence: None)
  Receive Date: 20110829
  Receipt Date: 20110825
  Transmission Date: 20111222
  Serious: Yes (Hospitalization, Other)
  Sender: FDA-Public Use
  Company Number: CA-AMGEN-CANSP2011005023

PATIENT
  Age: 88 Year
  Sex: Female
  Weight: 68 kg

DRUGS (4)
  1. TYLENOL W/ CODEINE [Concomitant]
     Dosage: UNK
  2. ENBREL [Suspect]
     Indication: RHEUMATOID ARTHRITIS
     Dosage: 50 MG, QWK
     Dates: start: 20080909
  3. METHOTREXATE [Concomitant]
     Dosage: UNK UNK, QWK
  4. PREDNISONE [Concomitant]
     Dosage: UNK

REACTIONS (8)
  - PRECANCEROUS SKIN LESION [None]
  - PAIN IN EXTREMITY [None]
  - INJECTION SITE HAEMATOMA [None]
  - LIMB DISCOMFORT [None]
  - NASOPHARYNGITIS [None]
  - PNEUMONIA [None]
  - INFECTION [None]
  - OEDEMA PERIPHERAL [None]
